FAERS Safety Report 8185212 (Version 2)
Quarter: 2014Q1

REPORT INFORMATION
  Report Type: Spontaneous
  Country: US (occurrence: US)
  Receive Date: 20111018
  Receipt Date: 20140109
  Transmission Date: 20141002
  Serious: No
  Sender: FDA-Public Use
  Company Number: US-ASTRAZENECA-2010SE59034

PATIENT
  Sex: Female

DRUGS (2)
  1. SYMBICORT [Suspect]
     Dosage: 160/4.5 MCG, TWO TIMES A DAY
     Route: 055
     Dates: end: 2013
  2. SYMBICORT [Suspect]
     Dosage: SOMETIMES DID NOT TAKE IT TWICE DAILY AND SOMETIMES DID NOT TAKE SYMBICORT AT ALL
     Route: 055

REACTIONS (3)
  - Dyspnoea [Unknown]
  - Drug dose omission [Unknown]
  - Intentional drug misuse [Unknown]
